FAERS Safety Report 21572508 (Version 2)
Quarter: 2023Q1

REPORT INFORMATION
  Report Type: Report from Study
  Country: US (occurrence: US)
  Receive Date: 20221109
  Receipt Date: 20230308
  Transmission Date: 20230418
  Serious: Yes (Hospitalization)
  Sender: FDA-Public Use
  Company Number: US-ABBVIE-22K-163-4486190-00

PATIENT
  Age: 92 Year
  Sex: Male

DRUGS (3)
  1. IMBRUVICA [Suspect]
     Active Substance: IBRUTINIB
     Indication: Waldenstrom^s macroglobulinaemia
     Route: 048
     Dates: start: 20190611
  2. PROZAC [Concomitant]
     Active Substance: FLUOXETINE HYDROCHLORIDE
     Indication: Product used for unknown indication
     Route: 065
  3. DULOXETINE [Concomitant]
     Active Substance: DULOXETINE
     Indication: Product used for unknown indication
     Route: 065

REACTIONS (11)
  - Back pain [Unknown]
  - Emotional disorder [Unknown]
  - Memory impairment [Unknown]
  - Immunoglobulins abnormal [Unknown]
  - Road traffic accident [Unknown]
  - Pain in extremity [Unknown]
  - Platelet count decreased [Unknown]
  - Pain [Unknown]
  - Blood pressure increased [Unknown]
  - Depression [Unknown]
  - Sciatica [Unknown]

NARRATIVE: CASE EVENT DATE: 20220501
